FAERS Safety Report 4428603-9 (Version None)
Quarter: 2004Q3

REPORT INFORMATION
  Report Type: 
  Country: None (occurrence: None)
  Receive Date: 20040818
  Receipt Date: 20040811
  Transmission Date: 20050211
  Serious: Yes (Death)
  Sender: FDA-Public Use
  Company Number: US-MERCK-0408USA01282

PATIENT
  Sex: Male

DRUGS (6)
  1. [THERAPY UNSPECIFIED] [Concomitant]
     Route: 065
  2. ELSPAR [Suspect]
     Indication: MEDIASTINUM NEOPLASM
     Route: 065
  3. ELSPAR [Suspect]
     Indication: BONE MARROW LEUKAEMIC CELL INFILTRATION
     Route: 065
  4. METHOTREXATE [Concomitant]
     Route: 042
  5. PREDNISONE [Concomitant]
     Route: 065
  6. VINCRISTINE SULFATE [Concomitant]
     Route: 065

REACTIONS (6)
  - BONE MARROW LEUKAEMIC CELL INFILTRATION [None]
  - CYSTITIS HAEMORRHAGIC [None]
  - GRAFT VERSUS HOST DISEASE [None]
  - LEUKOENCEPHALOPATHY [None]
  - TESTIS CANCER [None]
  - VENOOCCLUSIVE DISEASE [None]
